FAERS Safety Report 25207195 (Version 2)
Quarter: 2025Q2

REPORT INFORMATION
  Report Type: Spontaneous
  Country: JP (occurrence: JP)
  Receive Date: 20250417
  Receipt Date: 20250418
  Transmission Date: 20250716
  Serious: Yes (Life-Threatening)
  Sender: MYLAN
  Company Number: JP-VIATRISJAPAN-2025M1032209AA

PATIENT
  Age: 15 Year
  Sex: Female

DRUGS (4)
  1. ANHIBA [Suspect]
     Active Substance: ACETAMINOPHEN
     Indication: Nasopharyngitis
  2. ANHIBA [Suspect]
     Active Substance: ACETAMINOPHEN
     Route: 065
  3. ANHIBA [Suspect]
     Active Substance: ACETAMINOPHEN
     Route: 065
  4. ANHIBA [Suspect]
     Active Substance: ACETAMINOPHEN

REACTIONS (1)
  - Toxic epidermal necrolysis [Recovering/Resolving]
